FAERS Safety Report 9570066 (Version 1)
Quarter: 2013Q3

REPORT INFORMATION
  Report Type: Spontaneous
  Country: US (occurrence: US)
  Receive Date: 20130930
  Receipt Date: 20130930
  Transmission Date: 20140515
  Serious: No
  Sender: FDA-Public Use
  Company Number: US-AMGEN-USASP2013065102

PATIENT
  Age: 57 Year
  Sex: Female

DRUGS (3)
  1. ENBREL [Suspect]
     Indication: RHEUMATOID ARTHRITIS
     Dosage: 25 MG, 2 TIMES/WK
     Route: 065
     Dates: start: 20020101
  2. METHOTREXATE [Concomitant]
     Dosage: 15 MG, UNK
     Route: 048
     Dates: start: 201202
  3. HUMIRA [Concomitant]
     Dosage: UNK

REACTIONS (2)
  - Psoriasis [Recovered/Resolved]
  - Pustular psoriasis [Recovered/Resolved]
